FAERS Safety Report 12912393 (Version 2)
Quarter: 2016Q4

REPORT INFORMATION
  Report Type: Spontaneous
  Country: IT (occurrence: IT)
  Receive Date: 20161104
  Receipt Date: 20161128
  Transmission Date: 20170207
  Serious: Yes (Other)
  Sender: FDA-Public Use
  Company Number: IT-PFIZER INC-2016512605

PATIENT
  Age: 75 Day
  Sex: Female

DRUGS (2)
  1. VANCOMYCIN [Concomitant]
     Active Substance: VANCOMYCIN
     Indication: OSTEOMYELITIS
     Dosage: 40 MG/KG, DAILY ( IN 3 DIVIDED DOSES)
     Dates: start: 20151026, end: 20151209
  2. MEROPENEM. [Suspect]
     Active Substance: MEROPENEM
     Indication: OSTEOMYELITIS
     Dosage: 100 MG/KG, DAILY ( IN 3 DIVIDED DOSES)
     Route: 042
     Dates: start: 20151026, end: 20151130

REACTIONS (2)
  - Hypertriglyceridaemia [Recovered/Resolved]
  - Off label use [Unknown]
